FAERS Safety Report 10205528 (Version 1)
Quarter: 2014Q2

REPORT INFORMATION
  Report Type: Spontaneous
  Country: NO (occurrence: NO)
  Receive Date: 20140529
  Receipt Date: 20140529
  Transmission Date: 20141212
  Serious: Yes (Hospitalization)
  Sender: FDA-Public Use
  Company Number: NO-WATSON-2014-11480

PATIENT
  Age: 56 Year
  Sex: Female

DRUGS (7)
  1. FENTANYL (UNKNOWN) [Suspect]
     Indication: ANAESTHESIA
     Dosage: UNK
     Route: 065
     Dates: start: 20140407, end: 20140407
  2. PARACET /00020001/ [Suspect]
     Indication: PREMEDICATION
     Dosage: 1.5 G, UNK
     Route: 048
     Dates: start: 20140407, end: 20140407
  3. CODAXOL [Suspect]
     Indication: POSTOPERATIVE ANALGESIA
     Dosage: UNK, WHEN NEEDED
     Route: 048
     Dates: start: 20140407
  4. IBUX [Suspect]
     Indication: PREMEDICATION
     Dosage: 600 MG, UNK
     Route: 048
     Dates: start: 20140407, end: 20140407
  5. FORTECORTIN                        /00016001/ [Suspect]
     Indication: PREMEDICATION
     Dosage: 8 MG, UNK
     Route: 065
     Dates: start: 20140407, end: 20140407
  6. PROPOFOL [Suspect]
     Indication: ANAESTHESIA
     Dosage: UNK
     Route: 065
     Dates: start: 20140407, end: 20140407
  7. ULTIVA [Suspect]
     Indication: ANAESTHESIA
     Dosage: UNK
     Route: 065
     Dates: start: 20140407, end: 20140407

REACTIONS (2)
  - Hepatotoxicity [Recovered/Resolved]
  - Hepatitis toxic [None]
